FAERS Safety Report 8806634 (Version 1)
Quarter: 2012Q4

REPORT INFORMATION
  Report Type: Spontaneous
  Country: CA (occurrence: None)
  Receive Date: 20120919
  Receipt Date: 20120919
  Transmission Date: 20130627
  Serious: Yes (Other)
  Sender: FDA-Public Use
  Company Number: CA-009407

PATIENT
  Age: 87 Year
  Sex: Male

DRUGS (1)
  1. DEGARELIX [Suspect]
     Indication: PROSTATE CANCER
     Route: 058
     Dates: start: 201112

REACTIONS (8)
  - Syncope [None]
  - Lethargy [None]
  - Abdominal distension [None]
  - Dysuria [None]
  - Syncope [None]
  - Decreased appetite [None]
  - Nausea [None]
  - Dyspnoea [None]
